FAERS Safety Report 8197964-X (Version None)
Quarter: 2012Q1

REPORT INFORMATION
  Report Type: 
  Country: None (occurrence: None)
  Receive Date: 20120309
  Receipt Date: 20111130
  Transmission Date: 20120608
  Serious: Yes (Hospitalization)
  Sender: FDA-Public Use
  Company Number: US-AMGEN-USASP2011063539

PATIENT
  Age: 79 Year
  Sex: Male

DRUGS (3)
  1. FIRMAGON                           /01764801/ [Concomitant]
  2. VITAMIN D [Concomitant]
  3. XGEVA [Suspect]
     Indication: METASTASES TO BONE
     Dosage: 120 MG, Q4WK
     Dates: start: 20111006

REACTIONS (4)
  - BLOOD CREATININE ABNORMAL [None]
  - HYPOCALCAEMIA [None]
  - BLOOD POTASSIUM INCREASED [None]
  - BLOOD UREA ABNORMAL [None]
